FAERS Safety Report 20592623 (Version 1)
Quarter: 2022Q1

REPORT INFORMATION
  Report Type: Spontaneous
  Country: CN (occurrence: CN)
  Receive Date: 20220314
  Receipt Date: 20220314
  Transmission Date: 20220423
  Serious: Yes (Other)
  Sender: FDA-Public Use
  Company Number: CN-BAXTER-2022BAX005601

PATIENT
  Age: 41 Year
  Sex: Female
  Weight: 58 kg

DRUGS (8)
  1. CYCLOPHOSPHAMIDE [Suspect]
     Active Substance: CYCLOPHOSPHAMIDE
     Indication: Invasive ductal breast carcinoma
     Dosage: 0.9% SODIUM CHLORIDE INJECTION (50 ML) + CYCLOPHOSPHAMIDE FOR INJECTION (0.8 G)
     Route: 041
     Dates: start: 20220208, end: 20220208
  2. CYCLOPHOSPHAMIDE [Suspect]
     Active Substance: CYCLOPHOSPHAMIDE
     Dosage: DOSE REINTRODUCED: 0.9% SODIUM CHLORIDE INJECTION + CYCLOPHOSPHAMIDE FOR INJECTION
     Route: 041
  3. DEXTROSE [Suspect]
     Active Substance: DEXTROSE
     Indication: Medication dilution
     Dosage: 5% GLUCOSE INJECTION (500 ML) + DOXORUBICIN HYDROCHLORIDE LIPOSOME INJECTION (52 MG)
     Route: 041
     Dates: start: 20220208, end: 20220208
  4. DEXTROSE [Suspect]
     Active Substance: DEXTROSE
     Dosage: DOSE REINTRODUCED: 5% GLUCOSE INJECTION + DOXORUBICIN HYDROCHLORIDE LIPOSOME INJECTION
     Route: 041
  5. SODIUM CHLORIDE [Suspect]
     Active Substance: SODIUM CHLORIDE
     Indication: Medication dilution
     Dosage: 0.9% SODIUM CHLORIDE INJECTION (50 ML) + CYCLOPHOSPHAMIDE FOR INJECTION (0.8 G)
     Route: 041
     Dates: start: 20220208, end: 20220208
  6. SODIUM CHLORIDE [Suspect]
     Active Substance: SODIUM CHLORIDE
     Dosage: DOSE REINTRODUCED: 0.9% SODIUM CHLORIDE INJECTION + CYCLOPHOSPHAMIDE FOR INJECTION
     Route: 041
  7. DOXORUBICIN HYDROCHLORIDE [Suspect]
     Active Substance: DOXORUBICIN HYDROCHLORIDE
     Indication: Invasive ductal breast carcinoma
     Dosage: 5% GLUCOSE INJECTION (500 ML) + DOXORUBICIN HYDROCHLORIDE LIPOSOME INJECTION (52 MG)
     Route: 041
     Dates: start: 20220208, end: 20220208
  8. DOXORUBICIN HYDROCHLORIDE [Suspect]
     Active Substance: DOXORUBICIN HYDROCHLORIDE
     Dosage: DOSE REINTRODUCED: 5% GLUCOSE INJECTION + DOXORUBICIN HYDROCHLORIDE LIPOSOME INJECTION
     Route: 041

REACTIONS (2)
  - Drug-induced liver injury [Unknown]
  - Transaminases increased [Recovered/Resolved]

NARRATIVE: CASE EVENT DATE: 20220228
